FAERS Safety Report 13451251 (Version 1)
Quarter: 2017Q2

REPORT INFORMATION
  Report Type: Spontaneous
  Country: US (occurrence: US)
  Receive Date: 20170417
  Receipt Date: 20170417
  Transmission Date: 20170830
  Serious: Yes (Other)
  Sender: FDA-Public Use
  Company Number: None

PATIENT
  Age: 64 Year
  Sex: Male
  Weight: 119.2 kg

DRUGS (6)
  1. VIAGRA [Suspect]
     Active Substance: SILDENAFIL CITRATE
     Indication: ERECTILE DYSFUNCTION
     Dosage: QUANTITY:6 TABLET(S);OTHER FREQUENCY:INFREQUENT AS NEED;?
     Route: 048
     Dates: start: 20040524, end: 20170409
  2. VITAMIN C [Concomitant]
     Active Substance: ASCORBIC ACID
  3. TAMSULOSIN [Concomitant]
     Active Substance: TAMSULOSIN
  4. SAW PALMETTO [Concomitant]
     Active Substance: HERBALS\SAW PALMETTO
  5. METOPROLOL. [Concomitant]
     Active Substance: METOPROLOL
  6. ACYCLIVIR/ZOVIRAX [Concomitant]

REACTIONS (2)
  - Epistaxis [None]
  - Blood pressure increased [None]

NARRATIVE: CASE EVENT DATE: 20170409
